FAERS Safety Report 9501385 (Version 1)
Quarter: 2013Q3

REPORT INFORMATION
  Report Type: Spontaneous
  Country: US (occurrence: US)
  Receive Date: 20130905
  Receipt Date: 20130905
  Transmission Date: 20140515
  Serious: No
  Sender: FDA-Public Use
  Company Number: US-PFIZER INC-2013254809

PATIENT
  Age: 55 Year
  Sex: Male
  Weight: 200.45 kg

DRUGS (7)
  1. CELEBREX [Suspect]
     Indication: ARTHRITIS
     Dosage: 200 MG, 2X/DAY
     Route: 048
     Dates: end: 201308
  2. MELOXICAM [Concomitant]
     Dosage: 15 MG, UNK
  3. CITALOPRAM [Concomitant]
     Dosage: 40 MG, UNK
  4. FUROSEMIDE [Concomitant]
     Dosage: 40 MG, UNK
  5. GABAPENTIN [Concomitant]
     Dosage: 300 MG, UNK
  6. TRAMADOL [Concomitant]
     Dosage: 50 MG, UNK
  7. NEXIUM [Concomitant]
     Dosage: 40 MG, UNK

REACTIONS (1)
  - Pain [Not Recovered/Not Resolved]
